FAERS Safety Report 7437360-3 (Version None)
Quarter: 2011Q2

REPORT INFORMATION
  Report Type: 
  Country: None (occurrence: None)
  Receive Date: 20110426
  Receipt Date: 20110413
  Transmission Date: 20111010
  Serious: Yes (Hospitalization)
  Sender: FDA-Public Use
  Company Number: PHHY2011MX31400

PATIENT
  Age: 52 Year
  Sex: Female

DRUGS (1)
  1. CO-DIOVAN [Suspect]
     Indication: HYPERTENSION
     Dosage: 1 DF, (160/12.5 MG) PER DAY
     Route: 048
     Dates: start: 20110101

REACTIONS (2)
  - THYROID DISORDER [None]
  - TRACHEAL NEOPLASM [None]
